FAERS Safety Report 10011501 (Version 1)
Quarter: 2014Q1

REPORT INFORMATION
  Report Type: Spontaneous
  Country: US (occurrence: None)
  Receive Date: 20140313
  Receipt Date: 20140313
  Transmission Date: 20141002
  Serious: Yes (Death, Hospitalization)
  Sender: FDA-Public Use
  Company Number: None

PATIENT
  Age: 71 Year
  Sex: Male
  Weight: 90.01 kg

DRUGS (8)
  1. DECITABINE [Suspect]
  2. FLUDARABINE [Suspect]
  3. BUSULFAN [Concomitant]
  4. TOTAL BODY IRRIDATION [Concomitant]
  5. CYCLOPHOSPHAMIDE [Concomitant]
  6. MYCOPHENOLATE MOFETIL [Concomitant]
  7. TACROLIMUS [Suspect]
  8. FILGRASTIM [Concomitant]

REACTIONS (5)
  - Decreased appetite [None]
  - Nausea [None]
  - Diarrhoea [None]
  - Mucosal inflammation [None]
  - Pancytopenia [None]
